FAERS Safety Report 25615822 (Version 1)
Quarter: 2025Q3

REPORT INFORMATION
  Report Type: Spontaneous
  Country: US (occurrence: US)
  Receive Date: 20250729
  Receipt Date: 20250729
  Transmission Date: 20251021
  Serious: No
  Sender: ELI LILLY AND COMPANY
  Company Number: US-ELI_LILLY_AND_COMPANY-US202507013386

PATIENT
  Sex: Female

DRUGS (1)
  1. KISUNLA [Suspect]
     Active Substance: DONANEMAB-AZBT
     Indication: Product used for unknown indication
     Route: 065

REACTIONS (9)
  - Abdominal pain upper [Unknown]
  - Chills [Unknown]
  - Fluid intake reduced [Unknown]
  - Lethargy [Unknown]
  - Muscle spasms [Unknown]
  - Confusional state [Unknown]
  - Chromaturia [Unknown]
  - Dehydration [Unknown]
  - Vomiting [Unknown]
